FAERS Safety Report 8432829-7 (Version None)
Quarter: 2012Q2

REPORT INFORMATION
  Report Type: 
  Country: None (occurrence: None)
  Receive Date: 20120323
  Receipt Date: 20111123
  Transmission Date: 20120825
  Serious: Yes (Other)
  Sender: FDA-Public Use
  Company Number: 163-21880-11071633

PATIENT
  Age: 54 Year
  Sex: Female

DRUGS (8)
  1. VELCADE [Concomitant]
  2. REVLIMID [Suspect]
     Indication: MULTIPLE MYELOMA
     Dosage: 10 MG, X 28 DAYS, PO ; 10 MG, Q 21 DAYS, 7 DAYS OFF, PO
     Route: 048
     Dates: start: 20110501
  3. REVLIMID [Suspect]
     Indication: MULTIPLE MYELOMA
     Dosage: 10 MG, X 28 DAYS, PO ; 10 MG, Q 21 DAYS, 7 DAYS OFF, PO
     Route: 048
     Dates: start: 20101001, end: 20110501
  4. DEXAMETHASONE [Concomitant]
  5. LEVAQUIN [Concomitant]
  6. AMILORIDE HCL [Concomitant]
  7. ATENOLOL [Concomitant]
  8. DIOVAN [Concomitant]

REACTIONS (3)
  - UROSEPSIS [None]
  - CLOSTRIDIAL INFECTION [None]
  - RENAL FUNCTION TEST ABNORMAL [None]
